FAERS Safety Report 9868298 (Version 5)
Quarter: 2014Q1

REPORT INFORMATION
  Report Type: Spontaneous
  Country: JP (occurrence: JP)
  Receive Date: 20140204
  Receipt Date: 20140311
  Transmission Date: 20141002
  Serious: Yes (Death, Hospitalization)
  Sender: FDA-Public Use
  Company Number: JP-PFIZER INC-2014030257

PATIENT
  Age: 96 Year
  Sex: Female
  Weight: 48 kg

DRUGS (10)
  1. CADUET [Suspect]
     Indication: HYPERTENSION
     Dosage: 5 MG/5 MG, 1X/DAY
     Route: 048
  2. CADUET [Suspect]
     Indication: HYPERCHOLESTEROLAEMIA
  3. ARTIST [Suspect]
     Indication: CARDIAC FAILURE CHRONIC
     Dosage: 10 MG, 1X/DAY
     Route: 048
     Dates: end: 20140128
  4. ARTIST [Suspect]
     Indication: HYPERTENSION
  5. VESICARE [Suspect]
     Indication: NEUROGENIC BLADDER
     Dosage: 2.5 MG, 1X/DAY
     Route: 048
     Dates: start: 20131107, end: 20140128
  6. MICARDIS [Concomitant]
     Indication: HYPERTENSION
     Dosage: 80 MG, 1X/DAY
     Route: 048
  7. PLAVIX [Concomitant]
     Indication: CEREBRAL INFARCTION
     Dosage: 75 MG, 1X/DAY
     Route: 048
  8. LASIX [Concomitant]
     Dosage: 20 MG, DAILY
     Route: 048
  9. TRESIBA [Concomitant]
     Indication: TYPE 2 DIABETES MELLITUS
     Dosage: 10 UNITS, 1X/DAY
     Route: 058
     Dates: start: 20130726
  10. MAG-LAX [Concomitant]
     Indication: CONSTIPATION
     Dosage: 990 MG, 3X/DAY
     Route: 048

REACTIONS (5)
  - Cardiac failure chronic [Fatal]
  - Atrioventricular block [Fatal]
  - Bradycardia [Fatal]
  - Hypoxia [Recovering/Resolving]
  - Urinary tract infection [Not Recovered/Not Resolved]
